FAERS Safety Report 7071853-6 (Version None)
Quarter: 2010Q4

REPORT INFORMATION
  Report Type: 
  Country: None (occurrence: None)
  Receive Date: 20101029
  Receipt Date: 20101021
  Transmission Date: 20110411
  Serious: Yes (Other)
  Sender: FDA-Public Use
  Company Number: PHHY2010US70480

PATIENT
  Sex: Female

DRUGS (2)
  1. EXTAVIA [Suspect]
     Indication: MULTIPLE SCLEROSIS
     Dosage: 0.25 MG, QOD
     Route: 058
     Dates: start: 20100716
  2. ACETAMINOPHEN [Concomitant]

REACTIONS (7)
  - HYPOAESTHESIA [None]
  - MALAISE [None]
  - NAUSEA [None]
  - NERVE INJURY [None]
  - PAIN IN EXTREMITY [None]
  - SPINAL CORD DISORDER [None]
  - VOMITING [None]
